FAERS Safety Report 9231026 (Version 1)
Quarter: 2013Q2

REPORT INFORMATION
  Report Type: Report from Study
  Country: IL (occurrence: IL)
  Receive Date: 20130415
  Receipt Date: 20130415
  Transmission Date: 20140414
  Serious: Yes (Other)
  Sender: FDA-Public Use
  Company Number: IL-ROXANE LABORATORIES, INC.-2008-DE-07746GD

PATIENT
  Age: 35 Year
  Sex: Male

DRUGS (8)
  1. MORPHINE [Suspect]
     Indication: PAIN
     Dosage: 1000 MG
     Route: 042
  2. MORPHINE [Suspect]
     Dosage: 500 MG
     Route: 042
  3. CODEINE [Suspect]
     Indication: PAIN
     Dosage: 160 MG
     Route: 048
  4. PARACETAMOL [Suspect]
     Indication: PAIN
     Dosage: 4000 MG
  5. NSAID^S [Suspect]
     Indication: PAIN
  6. MEPERIDINE [Suspect]
     Indication: PAIN
     Dosage: UP TO 500 MG
     Route: 030
  7. FENTANYL [Suspect]
     Indication: PAIN
     Dosage: UP TO 300 MCG/72 H
     Route: 062
  8. KETAMINE [Suspect]
     Indication: PAIN
     Dosage: 500 MG
     Route: 042

REACTIONS (4)
  - Drug ineffective [Recovered/Resolved]
  - Hyperaesthesia [Recovered/Resolved]
  - Allodynia [Recovered/Resolved]
  - Somnolence [Recovered/Resolved]
